FAERS Safety Report 5733548-8 (Version None)
Quarter: 2008Q2

REPORT INFORMATION
  Report Type: 
  Country: None (occurrence: None)
  Receive Date: 20080509
  Receipt Date: 20080429
  Transmission Date: 20081010
  Serious: Yes (Death)
  Sender: FDA-Public Use
  Company Number: US-JNJFOC-20070901528

PATIENT
  Sex: Male
  Weight: 103.56 kg

DRUGS (5)
  1. DURAGESIC-100 [Suspect]
     Indication: PAIN
     Route: 062
  2. VICODIN [Concomitant]
  3. TRAZODONE HCL [Concomitant]
  4. KLONOPIN [Concomitant]
  5. DIPHENHYDRAMINE HCL [Concomitant]

REACTIONS (3)
  - DEVICE FAILURE [None]
  - DRUG ABUSE [None]
  - DRUG TOXICITY [None]
